FAERS Safety Report 8348581-X (Version None)
Quarter: 2012Q2

REPORT INFORMATION
  Report Type: 
  Country: None (occurrence: None)
  Receive Date: 20120510
  Receipt Date: 20120426
  Transmission Date: 20120825
  Serious: Yes (Death, Other)
  Sender: FDA-Public Use
  Company Number: JP-BRISTOL-MYERS SQUIBB COMPANY-16510901

PATIENT
  Age: 68 Year
  Sex: Male

DRUGS (3)
  1. ABILIFY [Suspect]
     Indication: BIPOLAR DISORDER
     Dosage: 23JAN12-08MAR12;46D,09MAR12-16MAR12;8D;30MG
     Route: 048
     Dates: start: 20120123, end: 20120316
  2. LEVOMEPROMAZINE MALEATE [Suspect]
     Dosage: TAB
     Route: 048
     Dates: start: 20120309
  3. LAMICTAL [Suspect]
     Dosage: TAB
     Route: 048

REACTIONS (3)
  - DEATH [None]
  - WHITE BLOOD CELL COUNT INCREASED [None]
  - BLOOD CREATINE PHOSPHOKINASE INCREASED [None]
